FAERS Safety Report 7989963-5 (Version None)
Quarter: 2011Q4

REPORT INFORMATION
  Report Type: 
  Country: None (occurrence: None)
  Receive Date: 20111219
  Receipt Date: 20110323
  Transmission Date: 20120403
  Serious: No
  Sender: FDA-Public Use
  Company Number: US-ASTRAZENECA-2011SE16710

PATIENT
  Age: 64 Year
  Sex: Male

DRUGS (1)
  1. CRESTOR [Suspect]
     Route: 048

REACTIONS (8)
  - ROTATOR CUFF SYNDROME [None]
  - DIZZINESS [None]
  - FATIGUE [None]
  - BLOOD PRESSURE FLUCTUATION [None]
  - VISION BLURRED [None]
  - ACCIDENT AT WORK [None]
  - SURGERY [None]
  - FALL [None]
